FAERS Safety Report 19645609 (Version 7)
Quarter: 2022Q2

REPORT INFORMATION
  Report Type: Other
  Country: GB (occurrence: GB)
  Receive Date: 20210802
  Receipt Date: 20220421
  Transmission Date: 20220721
  Serious: Yes (Hospitalization)
  Sender: FDA-Public Use
  Company Number: GB-ROCHE-2879981

PATIENT
  Age: 78 Year
  Sex: Female

DRUGS (22)
  1. ANASTROZOLE [Suspect]
     Active Substance: ANASTROZOLE
     Indication: Breast cancer metastatic
     Dosage: DRUG CUMULATIVE DOSAGE NUMBER?4801.042 MG?DRUG DOSAGE FORM 245
     Route: 048
     Dates: start: 20160113
  2. DENOSUMAB [Suspect]
     Active Substance: DENOSUMAB
     Indication: Breast cancer metastatic
     Dosage: DRUG CUMULATIVE DOSAGE NUMBER?154.286 MG
     Route: 042
     Dates: start: 20150530, end: 20150728
  3. DENOSUMAB [Suspect]
     Active Substance: DENOSUMAB
     Dosage: DRUG CUMULATIVE DOSAGE NUMBER?132 MG
     Route: 058
     Dates: start: 20150602
  4. EXEMESTANE [Suspect]
     Active Substance: EXEMESTANE
     Indication: Breast cancer metastatic
     Route: 048
     Dates: start: 20160113
  5. FULVESTRANT [Suspect]
     Active Substance: FULVESTRANT
     Indication: Breast cancer metastatic
     Dosage: DRUG CUMULATIVE DOSAGE NUMBER?1142.857 MG?DRUG DOSAGE FORM: 120
     Route: 058
     Dates: start: 20150331, end: 20150728
  6. LETROZOLE [Suspect]
     Active Substance: LETROZOLE
     Indication: Breast cancer metastatic
     Dosage: DRUG CUMULATIVE DOSAGE NUMBER?112.5 MG
     Route: 048
     Dates: start: 20150819, end: 20160113
  7. TRASTUZUMAB [Suspect]
     Active Substance: TRASTUZUMAB
     Indication: Breast cancer metastatic
     Dosage: DRUG CUMULATIVE DOSAGE NUMBER?1285.714 MG
     Route: 041
     Dates: start: 20150819, end: 20160323
  8. CALCIUM CARBONATE\CHOLECALCIFEROL [Concomitant]
     Active Substance: CALCIUM CARBONATE\CHOLECALCIFEROL
  9. ATORVASTATIN [Concomitant]
     Active Substance: ATORVASTATIN
  10. BENDROFLUMETHIAZIDE [Concomitant]
     Active Substance: BENDROFLUMETHIAZIDE
  11. BISOPROLOL [Concomitant]
     Active Substance: BISOPROLOL
     Route: 048
     Dates: start: 20160412
  12. COCODAMOL [Concomitant]
     Active Substance: ACETAMINOPHEN\CODEINE PHOSPHATE
     Route: 048
     Dates: start: 20150716
  13. COCODAMOL [Concomitant]
     Active Substance: ACETAMINOPHEN\CODEINE PHOSPHATE
     Route: 048
     Dates: start: 20150519
  14. CHOLECALCIFEROL [Concomitant]
     Active Substance: CHOLECALCIFEROL
     Route: 048
     Dates: start: 20150716
  15. DIGOXIN [Concomitant]
     Active Substance: DIGOXIN
     Route: 048
     Dates: start: 20150716
  16. FUROSEMIDE [Concomitant]
     Active Substance: FUROSEMIDE
  17. GLYCERIN [Concomitant]
     Active Substance: GLYCERIN
     Route: 054
     Dates: start: 20150819
  18. LACTULOSE [Concomitant]
     Active Substance: LACTULOSE
     Route: 048
     Dates: start: 20150716
  19. LACTULOSE [Concomitant]
     Active Substance: LACTULOSE
     Route: 048
     Dates: start: 20150519
  20. LANSOPRAZOLE [Concomitant]
     Active Substance: LANSOPRAZOLE
  21. POLYETHYLENE GLYCOLS [Concomitant]
     Active Substance: POLYETHYLENE GLYCOLS
     Route: 048
  22. TRIMETHOPRIM [Concomitant]
     Active Substance: TRIMETHOPRIM

REACTIONS (20)
  - Ejection fraction decreased [Recovered/Resolved]
  - Lower respiratory tract infection [Recovered/Resolved]
  - Swelling face [Recovered/Resolved]
  - Cerebrovascular accident [Recovered/Resolved]
  - Cellulitis [Recovered/Resolved]
  - Urinary tract infection [Not Recovered/Not Resolved]
  - Localised infection [Recovered/Resolved]
  - Abdominal pain [Not Recovered/Not Resolved]
  - Abdominal pain lower [Recovered/Resolved]
  - Pain in extremity [Not Recovered/Not Resolved]
  - Nausea [Not Recovered/Not Resolved]
  - Vomiting [Not Recovered/Not Resolved]
  - Asthenia [Not Recovered/Not Resolved]
  - Headache [Recovered/Resolved]
  - Headache [Not Recovered/Not Resolved]
  - Cough [Recovered/Resolved]
  - Hypertension [Recovered/Resolved]
  - Mouth swelling [Recovered/Resolved]
  - Superinfection [Recovering/Resolving]
  - Pustule [Recovered/Resolved]

NARRATIVE: CASE EVENT DATE: 20150705
